FAERS Safety Report 12699443 (Version 1)
Quarter: 2016Q3

REPORT INFORMATION
  Report Type: Spontaneous
  Country: KR (occurrence: KR)
  Receive Date: 20160830
  Receipt Date: 20160830
  Transmission Date: 20161109
  Serious: Yes (Other)
  Sender: FDA-Public Use
  Company Number: KR-AKORN PHARMACEUTICALS-2016AKN00557

PATIENT
  Age: 56 Year
  Sex: Female

DRUGS (1)
  1. TRIAMCINOLONE ACETONIDE. [Suspect]
     Active Substance: TRIAMCINOLONE ACETONIDE
     Indication: ALOPECIA UNIVERSALIS
     Dosage: 40 MG, EVERY 4 WEEKS
     Route: 030

REACTIONS (1)
  - Osteoporosis [Unknown]
